FAERS Safety Report 23661142 (Version 2)
Quarter: 2024Q1

REPORT INFORMATION
  Report Type: Other
  Country: TR (occurrence: None)
  Receive Date: 20240322
  Receipt Date: 20240325
  Transmission Date: 20240410
  Serious: Yes (Other)
  Sender: FDA-Public Use
  Company Number: TR-ROCHE-3530021

PATIENT
  Age: 67 Year
  Sex: Female

DRUGS (5)
  1. ALECTINIB [Suspect]
     Active Substance: ALECTINIB
     Indication: Lung adenocarcinoma
     Route: 065
  2. ALECTINIB [Suspect]
     Active Substance: ALECTINIB
     Route: 065
  3. ALECTINIB [Suspect]
     Active Substance: ALECTINIB
     Route: 065
  4. ALECTINIB [Suspect]
     Active Substance: ALECTINIB
     Route: 065
  5. PREDNISOLONE [Concomitant]
     Active Substance: PREDNISOLONE

REACTIONS (2)
  - Stevens-Johnson syndrome [Recovering/Resolving]
  - Toxic epidermal necrolysis [Recovering/Resolving]
